FAERS Safety Report 8258707-4 (Version None)
Quarter: 2012Q1

REPORT INFORMATION
  Report Type: 
  Country: None (occurrence: None)
  Receive Date: 20120322
  Receipt Date: 20120201
  Transmission Date: 20120608
  Serious: Yes (Death)
  Sender: FDA-Public Use
  Company Number: UTC-015169

PATIENT
  Age: 70 Year
  Sex: Female
  Weight: 61.36 kg

DRUGS (4)
  1. REVATIO [Concomitant]
  2. COUMADIN [Concomitant]
  3. TYVASO [Suspect]
     Indication: COR PULMONALE CHRONIC
     Dosage: 54-72 MICTOGRAMS [4 IN 1 D] INHALATION
     Route: 055
     Dates: start: 20090911
  4. TRACLEER [Concomitant]

REACTIONS (1)
  - RESPIRATORY FAILURE [None]
